FAERS Safety Report 9491237 (Version 1)
Quarter: 2013Q3

REPORT INFORMATION
  Report Type: Spontaneous
  Country: US (occurrence: None)
  Receive Date: 20130827
  Receipt Date: 20130827
  Transmission Date: 20140515
  Serious: Yes (Life-Threatening, Hospitalization)
  Sender: FDA-Public Use
  Company Number: 1713747-2013-99940

PATIENT
  Sex: Female

DRUGS (6)
  1. SALINE [Suspect]
  2. FRESENIUS K2 HEMODIALYSIS MACHINE [Concomitant]
  3. OPTIFLUX N160NR DIALYZER [Concomitant]
  4. FRESENIUS BLOODLINES [Concomitant]
  5. NATURALYTE BICARB [Concomitant]
  6. GRANUFLO 2.OK 2.5CA. [Concomitant]

REACTIONS (4)
  - Anxiety [None]
  - Restlessness [None]
  - Hyperventilation [None]
  - Respiratory arrest [None]
